FAERS Safety Report 5253854-3 (Version None)
Quarter: 2007Q1

REPORT INFORMATION
  Report Type: 
  Country: None (occurrence: None)
  Receive Date: 20070227
  Receipt Date: 20070214
  Transmission Date: 20070707
  Serious: Yes (Death)
  Sender: FDA-Public Use
  Company Number: 234704

PATIENT
  Age: 79 Year
  Sex: Female
  Weight: 58 kg

DRUGS (1)
  1. RITUXAN [Suspect]
     Indication: RHEUMATOID ARTHRITIS
     Dosage: 1000 MG, UNK, INTRAVENOUS
     Route: 042
     Dates: start: 20061012

REACTIONS (4)
  - FALL [None]
  - MALAISE [None]
  - RESPIRATORY FAILURE [None]
  - RIB FRACTURE [None]
